FAERS Safety Report 10203699 (Version 2)
Quarter: 2014Q2

REPORT INFORMATION
  Report Type: Report from Study
  Country: FR (occurrence: FR)
  Receive Date: 20140529
  Receipt Date: 20140623
  Transmission Date: 20141212
  Serious: Yes (Other)
  Sender: FDA-Public Use
  Company Number: FR-JNJFOC-20140512143

PATIENT
  Age: 43 Year
  Sex: Female

DRUGS (3)
  1. EPITOMAX [Suspect]
     Indication: EPILEPSY
     Dosage: 100 MG MORNING AND 200 MG EVENING
     Route: 048
     Dates: start: 2009
  2. GARDENAL [Suspect]
     Indication: PRODUCT USED FOR UNKNOWN INDICATION
     Route: 065
  3. TEGRETOL [Suspect]
     Indication: PRODUCT USED FOR UNKNOWN INDICATION
     Route: 065

REACTIONS (3)
  - Epilepsy [Unknown]
  - Hypokinesia [Recovered/Resolved]
  - Fatigue [Unknown]
